FAERS Safety Report 14038090 (Version 3)
Quarter: 2017Q4

REPORT INFORMATION
  Report Type: Report from Study
  Country: FR (occurrence: FR)
  Receive Date: 20171004
  Receipt Date: 20171017
  Transmission Date: 20180321
  Serious: Yes (Hospitalization)
  Sender: FDA-Public Use
  Company Number: FR-EISAI MEDICAL RESEARCH-EC-2017-031762

PATIENT
  Age: 6 Year
  Sex: Male
  Weight: 23 kg

DRUGS (5)
  1. PERAMPANEL [Suspect]
     Active Substance: PERAMPANEL
     Indication: IDIOPATHIC GENERALISED EPILEPSY
     Route: 048
     Dates: start: 20170925
  2. PARACETAMOL [Concomitant]
     Active Substance: ACETAMINOPHEN
  3. MACROGOL [Concomitant]
     Active Substance: POLYETHYLENE GLYCOLS
  4. TOPIRAMATE. [Concomitant]
     Active Substance: TOPIRAMATE
  5. LAMOTRIGINE. [Concomitant]
     Active Substance: LAMOTRIGINE

REACTIONS (1)
  - Epilepsy [Recovered/Resolved]

NARRATIVE: CASE EVENT DATE: 20170926
